FAERS Safety Report 20124922 (Version 1)
Quarter: 2021Q4

REPORT INFORMATION
  Report Type: Spontaneous
  Country: JP (occurrence: JP)
  Receive Date: 20211129
  Receipt Date: 20211129
  Transmission Date: 20220303
  Serious: Yes (Hospitalization)
  Sender: FDA-Public Use
  Company Number: JP-ELI_LILLY_AND_COMPANY-JP202111008108

PATIENT
  Age: 78 Year
  Sex: Female

DRUGS (2)
  1. CYRAMZA [Suspect]
     Active Substance: RAMUCIRUMAB
     Indication: Lung neoplasm malignant
     Dosage: UNK, CYCLICAL
     Route: 041
     Dates: start: 20210922
  2. TARCEVA [Suspect]
     Active Substance: ERLOTINIB HYDROCHLORIDE
     Indication: Lung neoplasm malignant
     Dosage: 150 MG, DAILY
     Route: 048
     Dates: start: 20210922

REACTIONS (2)
  - Cholecystitis [Recovered/Resolved]
  - Decreased appetite [Recovering/Resolving]
